FAERS Safety Report 12426641 (Version 2)
Quarter: 2016Q2

REPORT INFORMATION
  Report Type: Report from Study
  Country: GR (occurrence: GR)
  Receive Date: 20160601
  Receipt Date: 20160602
  Transmission Date: 20160815
  Serious: Yes (Disabling)
  Sender: FDA-Public Use
  Company Number: PHHY2016GR071813

PATIENT
  Age: 32 Year
  Sex: Male

DRUGS (1)
  1. CICLOSPORIN [Suspect]
     Active Substance: CYCLOSPORINE
     Indication: ANKYLOSING SPONDYLITIS
     Dosage: 100 MG, BID
     Route: 065

REACTIONS (3)
  - Iridocyclitis [Not Recovered/Not Resolved]
  - Fall [Unknown]
  - Product use issue [Unknown]
